FAERS Safety Report 9332929 (Version 1)
Quarter: 2013Q2

REPORT INFORMATION
  Report Type: Spontaneous
  Country: GB (occurrence: None)
  Receive Date: 20130603
  Receipt Date: 20130603
  Transmission Date: 20140414
  Serious: Yes (Hospitalization)
  Sender: FDA-Public Use
  Company Number: E2B_00000869

PATIENT
  Age: 45 Year
  Sex: Female
  Weight: 70 kg

DRUGS (4)
  1. SIMVASTATIN [Suspect]
     Indication: HYPERCHOLESTEROLAEMIA
     Route: 048
  2. OLANZAPINE (UNKNOWN) [Concomitant]
  3. LEVOTHYROXINE SODIUM (UNKNOWN) [Concomitant]
  4. ZOPICLONE (UNKNOWN) (ZOPICLONE) [Concomitant]

REACTIONS (3)
  - Rhabdomyolysis [None]
  - Blood creatine phosphokinase increased [None]
  - Blood creatinine increased [None]
